FAERS Safety Report 20552271 (Version 1)
Quarter: 2022Q1

REPORT INFORMATION
  Report Type: Spontaneous
  Country: US (occurrence: US)
  Receive Date: 20220304
  Receipt Date: 20220304
  Transmission Date: 20220424
  Serious: No
  Sender: FDA-Public Use
  Company Number: US-009507513-2203USA000690

PATIENT
  Age: 71 Year
  Sex: Female

DRUGS (3)
  1. CUBICIN [Suspect]
     Active Substance: DAPTOMYCIN
     Indication: Osteomyelitis
     Dosage: UNK, 69 DAYS
  2. CANCIDAS [Suspect]
     Active Substance: CASPOFUNGIN ACETATE
     Indication: Osteomyelitis
     Dosage: UNK, CONTINUED THROUGHOUT DURATION OF ANTIBIOTIC THERAPY AND ADDITIONAL 158 DAYS
  3. MEROPENEM [Concomitant]
     Active Substance: MEROPENEM
     Indication: Osteomyelitis
     Dosage: UNK, 69 DAYS

REACTIONS (1)
  - Product use in unapproved indication [Unknown]
